FAERS Safety Report 8820331 (Version 1)
Quarter: 2012Q4

REPORT INFORMATION
  Report Type: 
  Country: GB (occurrence: GB)
  Receive Date: 20121002
  Receipt Date: 20121002
  Transmission Date: 20130627
  Serious: Yes (Other)
  Sender: FDA-Public Use
  Company Number: GB-MERCK-1209GBR010681

PATIENT
  Age: 45 Year
  Sex: Male

DRUGS (3)
  1. REBETOL [Suspect]
     Indication: HEPATITIS C
     Dosage: 2 dose(s), 3 in 1 day
     Route: 048
     Dates: start: 20120606
  2. VIRAFERONPEG [Suspect]
     Indication: HEPATITIS C
     Dosage: 2 dose (s), 3 in 1 day
     Route: 058
     Dates: start: 20120606
  3. TELAPREVIR [Suspect]
     Indication: HEPATITIS C
     Dosage: 750 mg, q8h
     Route: 048
     Dates: start: 20120606

REACTIONS (1)
  - Neuropathy peripheral [Not Recovered/Not Resolved]
